FAERS Safety Report 5241053-0 (Version None)
Quarter: 2007Q1

REPORT INFORMATION
  Report Type: 
  Country: None (occurrence: None)
  Receive Date: 20070214
  Receipt Date: 20070214
  Transmission Date: 20070707
  Serious: Yes (Other)
  Sender: FDA-Public Use
  Company Number: None

PATIENT
  Age: 73 Year
  Sex: Male
  Weight: 91 kg

DRUGS (5)
  1. VANCOMYCIN [Suspect]
     Indication: CORYNEBACTERIUM INFECTION
     Dosage: 1250 MG Q 12 HRS IV
     Route: 042
  2. VANCOMYCIN [Suspect]
     Indication: OSTEOMYELITIS
     Dosage: 1250 MG Q 12 HRS IV
     Route: 042
  3. VANCOMYCIN [Suspect]
  4. VANCOMYCIN [Suspect]
  5. RIFAMPIN [Concomitant]

REACTIONS (2)
  - LEUKOPENIA [None]
  - NEUTROPENIA [None]
